FAERS Safety Report 9207155 (Version 2)
Quarter: 2013Q3

REPORT INFORMATION
  Report Type: Spontaneous
  Country: US (occurrence: None)
  Receive Date: 20120817
  Receipt Date: 20130815
  Transmission Date: 20140515
  Serious: Yes (Hospitalization)
  Sender: FDA-Public Use
  Company Number: ADR-2012-00610

PATIENT
  Sex: Female

DRUGS (2)
  1. BACLOFEN INTRATHECAL [Suspect]
     Indication: PAIN
  2. BACLOFEN INTRATHECAL [Suspect]
     Indication: PAIN

REACTIONS (3)
  - Loss of consciousness [None]
  - Stupor [None]
  - Apnoea [None]
